FAERS Safety Report 19926830 (Version 1)
Quarter: 2021Q4

REPORT INFORMATION
  Report Type: Report from Study
  Country: US (occurrence: US)
  Receive Date: 20211007
  Receipt Date: 20211007
  Transmission Date: 20220304
  Serious: No
  Sender: FDA-Public Use
  Company Number: US-NOVARTISTESTPH-NVSC2021US227512

PATIENT
  Sex: Female

DRUGS (1)
  1. PIQRAY [Suspect]
     Active Substance: ALPELISIB
     Indication: Product used for unknown indication
     Dosage: UNK
     Route: 048

REACTIONS (7)
  - Malnutrition [Unknown]
  - Physical deconditioning [Unknown]
  - Somnolence [Unknown]
  - Dysstasia [Unknown]
  - Asthenia [Unknown]
  - Weight decreased [Unknown]
  - Diarrhoea [Unknown]
